FAERS Safety Report 5916495-8 (Version None)
Quarter: 2008Q4

REPORT INFORMATION
  Report Type: 
  Country: None (occurrence: None)
  Receive Date: 20081013
  Receipt Date: 20081007
  Transmission Date: 20090506
  Serious: Yes (Other)
  Sender: FDA-Public Use
  Company Number: A0750785A

PATIENT

DRUGS (2)
  1. LOVAZA [Suspect]
     Indication: DRUG USE FOR UNKNOWN INDICATION
     Route: 048
  2. ANTI-HYPERLIPIDAEMIC (UNSPECIFIED) [Concomitant]

REACTIONS (1)
  - HEPATIC ENZYME INCREASED [None]
